FAERS Safety Report 6679048-2 (Version None)
Quarter: 2010Q2

REPORT INFORMATION
  Report Type: 
  Country: None (occurrence: None)
  Receive Date: 20100413
  Receipt Date: 20100405
  Transmission Date: 20101027
  Serious: Yes (Hospitalization)
  Sender: FDA-Public Use
  Company Number: PHHY2010US21186

PATIENT
  Sex: Female

DRUGS (6)
  1. DIOVAN [Suspect]
     Dosage: 160 MG, UNK
     Dates: start: 20100305, end: 20100330
  2. VERAPAMIL [Concomitant]
  3. HYDROXYCHLOROQUINE SULFATE [Concomitant]
     Dosage: UNK
  4. CLONIDINE [Concomitant]
  5. ASPIRIN [Concomitant]
  6. PREDNISONE TAB [Concomitant]
     Dosage: UNK

REACTIONS (4)
  - DISORIENTATION [None]
  - MALAISE [None]
  - ORAL DISCOMFORT [None]
  - SWOLLEN TONGUE [None]
